FAERS Safety Report 6550470-8 (Version None)
Quarter: 2010Q1

REPORT INFORMATION
  Report Type: 
  Country: None (occurrence: None)
  Receive Date: 20100125
  Receipt Date: 20100119
  Transmission Date: 20100710
  Serious: Yes (Hospitalization)
  Sender: FDA-Public Use
  Company Number: A0840610A

PATIENT
  Age: 34 Year
  Sex: Female
  Weight: 114 kg

DRUGS (6)
  1. LAPATINIB [Suspect]
     Dosage: 750MG PER DAY
     Route: 048
     Dates: start: 20090911
  2. TRASTUZUMAB [Suspect]
     Dosage: 4MGK WEEKLY
     Route: 042
     Dates: start: 20090911
  3. FLUOROURACIL [Suspect]
     Dosage: 500MGM2 CYCLIC
     Route: 042
     Dates: start: 20090925
  4. EPIRUBICIN [Suspect]
     Dosage: 75MGM2 CYCLIC
     Route: 042
     Dates: start: 20090925
  5. CYCLOPHOSPHAMIDE [Suspect]
     Dosage: 500MGM2 CYCLIC
     Route: 042
     Dates: start: 20090925
  6. PACLITAXEL [Suspect]
     Dosage: 80MGM2 CYCLIC
     Route: 042
     Dates: start: 20091223

REACTIONS (3)
  - NEUTROPENIA [None]
  - PYREXIA [None]
  - URINARY TRACT INFECTION [None]
